FAERS Safety Report 4358258-3 (Version None)
Quarter: 2004Q2

REPORT INFORMATION
  Report Type: 
  Country: None (occurrence: None)
  Receive Date: 20040511
  Receipt Date: 20040511
  Transmission Date: 20050107
  Serious: Yes (Life-Threatening, Hospitalization)
  Sender: FDA-Public Use
  Company Number: None

PATIENT
  Age: 34 Year
  Sex: Male
  Weight: 84 kg

DRUGS (7)
  1. BACTRIM DS [Suspect]
  2. HYDROCODONE 5.0 MG/ACETAMINOPHEN [Concomitant]
  3. ACETAMINOPHEN [Concomitant]
  4. RISPERIDONE [Concomitant]
  5. SERTRALINE [Concomitant]
  6. SILDENAFIL [Concomitant]
  7. PAROXETINE HCL [Concomitant]

REACTIONS (2)
  - HEPATOTOXICITY [None]
  - RASH [None]
